FAERS Safety Report 11030487 (Version 1)
Quarter: 2015Q2

REPORT INFORMATION
  Report Type: Spontaneous
  Country: US (occurrence: None)
  Receive Date: 20150414
  Receipt Date: 20150414
  Transmission Date: 20150821
  Serious: Yes (Hospitalization)
  Sender: FDA-Public Use
  Company Number: None

PATIENT
  Age: 64 Year
  Sex: Male
  Weight: 117.7 kg

DRUGS (1)
  1. SELEGILINE [Suspect]
     Active Substance: SELEGILINE
     Indication: PARKINSON^S DISEASE
     Route: 048
     Dates: start: 20141001, end: 20141111

REACTIONS (7)
  - Paranoia [None]
  - Leukopenia [None]
  - Energy increased [None]
  - Insomnia [None]
  - Hallucination, visual [None]
  - Thermal burn [None]
  - Weight decreased [None]

NARRATIVE: CASE EVENT DATE: 20141111
